FAERS Safety Report 9494854 (Version 1)
Quarter: 2013Q3

REPORT INFORMATION
  Report Type: Spontaneous
  Country: CA (occurrence: CA)
  Receive Date: 20130903
  Receipt Date: 20130903
  Transmission Date: 20140515
  Serious: Yes (Other)
  Sender: FDA-Public Use
  Company Number: CA-ROCHE-1266035

PATIENT
  Age: 35 Year
  Sex: Male

DRUGS (5)
  1. VALIUM [Suspect]
     Indication: PRODUCT USED FOR UNKNOWN INDICATION
     Route: 065
  2. PERCOCET [Suspect]
     Indication: PRODUCT USED FOR UNKNOWN INDICATION
     Route: 065
  3. OXYCONTIN [Suspect]
     Indication: PRODUCT USED FOR UNKNOWN INDICATION
     Route: 065
  4. OXYCONTIN [Suspect]
     Dosage: FREQUENCY: AS REQUIRED
     Route: 045
  5. OXYCONTIN [Suspect]
     Route: 065

REACTIONS (9)
  - Bedridden [Unknown]
  - Drug dependence [Unknown]
  - Drug tolerance [Unknown]
  - Drug withdrawal syndrome [Unknown]
  - Euphoric mood [Unknown]
  - Flushing [Unknown]
  - Pruritus [Unknown]
  - Substance abuse [Unknown]
  - Vomiting [Unknown]
